FAERS Safety Report 7132467-2 (Version None)
Quarter: 2010Q4

REPORT INFORMATION
  Report Type: 
  Country: None (occurrence: None)
  Receive Date: 20101130
  Receipt Date: 20101130
  Transmission Date: 20110411
  Serious: Yes (Life-Threatening)
  Sender: FDA-Public Use
  Company Number: None

PATIENT
  Age: 49 Year
  Sex: Male
  Weight: 127.2 kg

DRUGS (1)
  1. DARVOCET-N 100 [Suspect]
     Indication: NECK PAIN
     Dosage: N-100 EVERY 6 HOURS PO
     Route: 048
     Dates: start: 20081015, end: 20101126

REACTIONS (2)
  - DIZZINESS [None]
  - PALPITATIONS [None]
